FAERS Safety Report 4939006-2 (Version None)
Quarter: 2006Q1

REPORT INFORMATION
  Report Type: 
  Country: None (occurrence: None)
  Receive Date: 20060309
  Receipt Date: 20050928
  Transmission Date: 20060701
  Serious: Yes (Hospitalization)
  Sender: FDA-Public Use
  Company Number: US-MERCK-0510USA00633

PATIENT
  Age: 74 Year
  Sex: Female
  Weight: 89 kg

DRUGS (7)
  1. VIOXX [Suspect]
     Indication: ARTHRITIS
     Route: 048
     Dates: start: 19990715, end: 20000101
  2. VIOXX [Suspect]
     Route: 048
     Dates: start: 20000201, end: 20040930
  3. VIOXX [Suspect]
     Indication: ARTHRALGIA
     Route: 048
     Dates: start: 19990715, end: 20000101
  4. VIOXX [Suspect]
     Route: 048
     Dates: start: 20000201, end: 20040930
  5. ZESTRIL [Concomitant]
     Route: 065
  6. LIPITOR [Concomitant]
     Route: 065
  7. GLUCOPHAGE [Concomitant]
     Route: 065

REACTIONS (34)
  - ANGINA PECTORIS [None]
  - ARTERIOSCLEROSIS CORONARY ARTERY [None]
  - ARTHRALGIA [None]
  - ATRIOVENTRICULAR BLOCK FIRST DEGREE [None]
  - CARDIOMEGALY [None]
  - CAROTID ARTERY STENOSIS [None]
  - CEREBROVASCULAR DISORDER [None]
  - CHEST PAIN [None]
  - CHOLELITHIASIS [None]
  - CORONARY ARTERY DISEASE [None]
  - DEPRESSION [None]
  - FALL [None]
  - FEMUR FRACTURE [None]
  - GALLBLADDER DISORDER [None]
  - GASTROINTESTINAL HAEMORRHAGE [None]
  - GASTROOESOPHAGEAL REFLUX DISEASE [None]
  - HEPATIC FUNCTION ABNORMAL [None]
  - HIP FRACTURE [None]
  - INTERVERTEBRAL DISC DISORDER [None]
  - KYPHOSIS [None]
  - LIMB INJURY [None]
  - LUNG DISORDER [None]
  - MENTAL STATUS CHANGES [None]
  - MYOCARDIAL INFARCTION [None]
  - OSTEOARTHRITIS [None]
  - OSTEOPENIA [None]
  - OSTEOPOROSIS [None]
  - PERIPHERAL VASCULAR DISORDER [None]
  - RENAL FAILURE [None]
  - SINUS ARRHYTHMIA [None]
  - SINUSITIS [None]
  - SPINAL COLUMN STENOSIS [None]
  - TOXIC INDUCED ENCEPHALOPATHY [None]
  - TRANSIENT ISCHAEMIC ATTACK [None]
